FAERS Safety Report 9249753 (Version 3)
Quarter: 2013Q3

REPORT INFORMATION
  Report Type: Report from Study
  Country: BE (occurrence: BE)
  Receive Date: 20130423
  Receipt Date: 20130924
  Transmission Date: 20140515
  Serious: Yes (Other)
  Sender: FDA-Public Use
  Company Number: BE-CELGENEUS-013-50794-13042719

PATIENT
  Age: 81 Year
  Sex: Female

DRUGS (2)
  1. VIDAZA [Suspect]
     Indication: ACUTE MYELOID LEUKAEMIA
     Dosage: 365 MILLIGRAM
     Route: 065
     Dates: start: 20110620
  2. VIDAZA [Suspect]
     Route: 065
     Dates: start: 20110919

REACTIONS (5)
  - Platelet count decreased [Recovered/Resolved]
  - Nausea [Recovered/Resolved]
  - Pruritus [Recovered/Resolved]
  - Fatigue [Recovered/Resolved]
  - Upper respiratory tract infection [Recovered/Resolved]
